FAERS Safety Report 6506869-9 (Version None)
Quarter: 2009Q4

REPORT INFORMATION
  Report Type: 
  Country: None (occurrence: None)
  Receive Date: 20091216
  Receipt Date: 20091201
  Transmission Date: 20100525
  Serious: Yes (Death)
  Sender: FDA-Public Use
  Company Number: 128

PATIENT
  Age: 34 Year
  Sex: Male

DRUGS (4)
  1. FAZACLO ODT [Suspect]
     Indication: SCHIZOAFFECTIVE DISORDER
     Dosage: 450 MG PO DAILY
     Route: 048
     Dates: start: 20051012, end: 20070502
  2. ABILIFY [Concomitant]
  3. COGENTIN [Concomitant]
  4. DEPAKOTE [Concomitant]

REACTIONS (1)
  - ARTERIOSCLEROSIS CORONARY ARTERY [None]
